FAERS Safety Report 7300613-3 (Version None)
Quarter: 2011Q1

REPORT INFORMATION
  Report Type: 
  Country: None (occurrence: None)
  Receive Date: 20110218
  Receipt Date: 20110207
  Transmission Date: 20110831
  Serious: No
  Sender: FDA-Public Use
  Company Number: US-BIOGENIDEC-2011BI005519

PATIENT
  Age: 48 Year
  Sex: Female

DRUGS (2)
  1. TYSABRI [Suspect]
     Indication: MULTIPLE SCLEROSIS
     Route: 042
     Dates: end: 20101102
  2. TYSABRI [Suspect]
     Route: 042
     Dates: start: 20090303, end: 20100917

REACTIONS (5)
  - VISION BLURRED [None]
  - FATIGUE [None]
  - COGNITIVE DISORDER [None]
  - HEADACHE [None]
  - CENTRAL NERVOUS SYSTEM LESION [None]
